FAERS Safety Report 23449574 (Version 1)
Quarter: 2024Q1

REPORT INFORMATION
  Report Type: Spontaneous
  Country: CN (occurrence: CN)
  Receive Date: 20240129
  Receipt Date: 20240129
  Transmission Date: 20240409
  Serious: Yes (Hospitalization, Other)
  Sender: FDA-Public Use
  Company Number: CN-HALEON-CNCH2024APC004771

PATIENT

DRUGS (2)
  1. IBUPROFEN [Suspect]
     Active Substance: IBUPROFEN
     Indication: Rheumatoid arthritis
     Dosage: 0.4 G, BID
     Route: 048
     Dates: start: 20230101, end: 20240108
  2. DEXAMETHASONE ACETATE [Suspect]
     Active Substance: DEXAMETHASONE ACETATE
     Indication: Rheumatoid arthritis
     Dosage: 1.5 MG, TID
     Route: 048
     Dates: start: 20230101, end: 20240108

REACTIONS (6)
  - Gastric ulcer perforation [Recovering/Resolving]
  - Peritonitis [Recovering/Resolving]
  - Gastrointestinal infection [Recovering/Resolving]
  - Abdominal discomfort [Recovering/Resolving]
  - Condition aggravated [Recovering/Resolving]
  - Pain [Unknown]

NARRATIVE: CASE EVENT DATE: 20240108
